FAERS Safety Report 7692022-2 (Version None)
Quarter: 2011Q3

REPORT INFORMATION
  Report Type: 
  Country: None (occurrence: None)
  Receive Date: 20110818
  Receipt Date: 20110809
  Transmission Date: 20111222
  Serious: Yes (Hospitalization)
  Sender: FDA-Public Use
  Company Number: JP-ASTRAZENECA-2010SE52937

PATIENT
  Age: 66 Year
  Sex: Male
  Weight: 55 kg

DRUGS (11)
  1. METHYCOBAL [Concomitant]
     Indication: NEUROPATHY PERIPHERAL
     Route: 048
  2. DAIKEN-CHYUTO [Concomitant]
     Indication: INTESTINAL OBSTRUCTION
     Route: 065
  3. AMLODIPINE [Suspect]
     Indication: HYPERTENSION
     Route: 048
     Dates: start: 20100925, end: 20100930
  4. AZUNOL [Concomitant]
     Indication: DRY SKIN PROPHYLAXIS
     Route: 065
     Dates: start: 20100915
  5. KOBALNON [Concomitant]
     Indication: INTESTINAL OBSTRUCTION
     Route: 048
  6. KERATINAMIN [Concomitant]
     Indication: PALMAR-PLANTAR ERYTHRODYSAESTHESIA SYNDROME
     Route: 065
     Dates: start: 20100922
  7. TAMSULOSIN HCL [Concomitant]
     Indication: BENIGN PROSTATIC HYPERPLASIA
     Route: 048
  8. ALOSENN [Concomitant]
     Indication: CONSTIPATION
     Route: 065
     Dates: start: 20100822
  9. INCARBON [Concomitant]
     Indication: CONSTIPATION
     Route: 065
     Dates: start: 20100922
  10. CANDESARTAN CILEXETIL [Suspect]
     Indication: HYPERTENSION
     Route: 048
     Dates: start: 20100920
  11. AXITINIB [Suspect]
     Indication: METASTATIC RENAL CELL CARCINOMA
     Route: 048
     Dates: start: 20100915

REACTIONS (1)
  - ORTHOSTATIC HYPOTENSION [None]
